FAERS Safety Report 8848659 (Version 2)
Quarter: 2014Q2

REPORT INFORMATION
  Report Type: Spontaneous
  Country: US (occurrence: US)
  Receive Date: 20121018
  Receipt Date: 20131018
  Transmission Date: 20141212
  Serious: Yes (Hospitalization, Other)
  Sender: FDA-Public Use
  Company Number: US-PFIZER INC-2012253215

PATIENT
  Age: 4 Year
  Sex: Female

DRUGS (5)
  1. PHENYTOIN [Suspect]
     Indication: CONVULSION
     Dosage: 50 MG, 2X/DAY
  2. ETHOSUXIMIDE [Suspect]
     Indication: CONVULSION
     Dosage: 250 MG, 2X/DAY
  3. PHENOBARBITAL [Suspect]
     Indication: CONVULSION
     Dosage: 30 MG, 2X/DAY
  4. PRIMIDONE [Suspect]
     Indication: CONVULSION
     Dosage: 250 MG, 2X/DAY
  5. PRIMIDONE [Suspect]
     Dosage: 50 MG, 2X/DAY

REACTIONS (11)
  - Convulsion [Recovering/Resolving]
  - Ataxia [Recovering/Resolving]
  - Intention tremor [Recovering/Resolving]
  - Dilatation ventricular [Recovering/Resolving]
  - Myoclonus [Recovering/Resolving]
  - Petit mal epilepsy [Recovering/Resolving]
  - Generalised tonic-clonic seizure [Recovering/Resolving]
  - Depressed level of consciousness [Recovering/Resolving]
  - Anticonvulsant drug level increased [Recovering/Resolving]
  - Lethargy [Recovering/Resolving]
  - Coordination abnormal [Recovering/Resolving]
